FAERS Safety Report 9147963 (Version 1)
Quarter: 2013Q1

REPORT INFORMATION
  Report Type: Spontaneous
  Country: US (occurrence: US)
  Receive Date: 20130226
  Receipt Date: 20130226
  Transmission Date: 20140127
  Serious: Yes (Other)
  Sender: FDA-Public Use
  Company Number: US-BRACCO-009167

PATIENT
  Age: 75 Year
  Sex: Male

DRUGS (4)
  1. BARIUM SULFATE [Suspect]
     Indication: BARIUM SWALLOW
     Route: 048
     Dates: start: 20130208, end: 20130208
  2. BARIUM SULFATE [Suspect]
     Indication: BARIUM SWALLOW
     Route: 048
     Dates: start: 20130208, end: 20130208
  3. LANTUS [Concomitant]
  4. SIMVASTATIN [Concomitant]

REACTIONS (1)
  - Blood glucose increased [Recovered/Resolved]
